FAERS Safety Report 8502978-3 (Version None)
Quarter: 2012Q3

REPORT INFORMATION
  Report Type: 
  Country: None (occurrence: None)
  Receive Date: 20120711
  Receipt Date: 20120708
  Transmission Date: 20120928
  Serious: Yes (Hospitalization, Other)
  Sender: FDA-Public Use
  Company Number: PHHY2012AT058624

PATIENT
  Age: 74 Year
  Sex: Male
  Weight: 102 kg

DRUGS (2)
  1. SPA100A [Suspect]
     Dosage: 150/5 MG
     Dates: start: 20111011
  2. SPA100A [Suspect]
     Dosage: 300/5 MG DAILY
     Dates: start: 20111101

REACTIONS (2)
  - BLOOD PRESSURE INCREASED [None]
  - PERIPHERAL ARTERIAL OCCLUSIVE DISEASE [None]
